FAERS Safety Report 4947944-X (Version None)
Quarter: 2006Q1

REPORT INFORMATION
  Report Type: 
  Country: None (occurrence: None)
  Receive Date: 20060314
  Receipt Date: 20060303
  Transmission Date: 20060701
  Serious: Yes (Death)
  Sender: FDA-Public Use
  Company Number: FLX20050014

PATIENT
  Age: 44 Year
  Sex: Male
  Weight: 83.0083 kg

DRUGS (3)
  1. FLUOXETINE [Suspect]
     Indication: DEPRESSION
     Dosage: 40 MG PO
     Route: 048
     Dates: start: 20010830
  2. WELLBUTRIN [Concomitant]
  3. PROZAC [Concomitant]

REACTIONS (10)
  - BLOOD ALCOHOL INCREASED [None]
  - CEREBRAL HAEMORRHAGE [None]
  - COMPLETED SUICIDE [None]
  - DRUG LEVEL INCREASED [None]
  - EXTRAPYRAMIDAL DISORDER [None]
  - FACIAL BONES FRACTURE [None]
  - GUN SHOT WOUND [None]
  - HALLUCINATION, AUDITORY [None]
  - ILL-DEFINED DISORDER [None]
  - SKULL FRACTURE [None]
